FAERS Safety Report 6139407-3 (Version None)
Quarter: 2009Q2

REPORT INFORMATION
  Report Type: 
  Country: None (occurrence: None)
  Receive Date: 20090401
  Receipt Date: 20090318
  Transmission Date: 20091009
  Serious: Yes (Hospitalization)
  Sender: FDA-Public Use
  Company Number: GB-ROCHE-617633

PATIENT
  Age: 65 Year
  Sex: Female

DRUGS (5)
  1. CELLCEPT [Suspect]
     Indication: UVEITIS
     Dosage: FREQUENCY REPORTED AS - 12 HOURLY
     Route: 048
     Dates: start: 20071201
  2. BENDROFLUMETHIAZIDE [Concomitant]
     Indication: HYPERTENSION
     Route: 048
  3. RAMIPRIL [Concomitant]
     Indication: HYPERTENSION
     Route: 048
  4. PRAZSOIN HCL [Concomitant]
     Indication: HYPERTENSION
     Route: 065
  5. PARACETAMOL [Concomitant]
     Indication: PAIN
     Route: 065

REACTIONS (2)
  - DIVERTICULITIS [None]
  - WEIGHT DECREASED [None]
